FAERS Safety Report 5894848-4 (Version None)
Quarter: 2008Q3

REPORT INFORMATION
  Report Type: 
  Country: None (occurrence: None)
  Receive Date: 20080924
  Receipt Date: 20080624
  Transmission Date: 20090109
  Serious: No
  Sender: FDA-Public Use
  Company Number: US-ASTRAZENECA-2008UW12839

PATIENT
  Age: 48 Year
  Sex: Female

DRUGS (2)
  1. SEROQUEL [Suspect]
     Indication: BIPOLAR I DISORDER
     Route: 048
  2. LORAZEPAM [Concomitant]

REACTIONS (2)
  - BLADDER OPERATION [None]
  - DEPRESSED MOOD [None]
